FAERS Safety Report 7985590-4 (Version None)
Quarter: 2011Q4

REPORT INFORMATION
  Report Type: 
  Country: None (occurrence: None)
  Receive Date: 20111216
  Receipt Date: 20111205
  Transmission Date: 20120403
  Serious: Yes (Hospitalization, Other)
  Sender: FDA-Public Use
  Company Number: US-BRISTOL-MYERS SQUIBB COMPANY-15438450

PATIENT
  Age: 74 Year
  Sex: Male
  Weight: 77 kg

DRUGS (5)
  1. PROTONIX [Concomitant]
  2. COUMADIN [Suspect]
     Dosage: DISCONTINUED
     Dates: start: 20030101, end: 20100301
  3. AVAPRO [Suspect]
     Indication: HYPERTENSION
     Dosage: JAN07: DOSE REDUCED TO 75 MG ONCE A DAY.
     Dates: start: 20051001
  4. DILTIAZEM HCL [Concomitant]
     Dosage: THERAPY DISCONTINUED
  5. ASPIRIN [Concomitant]

REACTIONS (2)
  - ATRIAL FIBRILLATION [None]
  - HAEMORRHAGE [None]
